FAERS Safety Report 6678217-5 (Version None)
Quarter: 2010Q2

REPORT INFORMATION
  Report Type: 
  Country: None (occurrence: None)
  Receive Date: 20100408
  Receipt Date: 20100408
  Transmission Date: 20101027
  Serious: Yes (Hospitalization)
  Sender: FDA-Public Use
  Company Number: None

PATIENT
  Sex: Female
  Weight: 48.0813 kg

DRUGS (1)
  1. LAMOTRIGINE [Suspect]
     Indication: CONVULSION
     Dosage: 50 MG TWICE DAILY PO
     Route: 048
     Dates: start: 20091208, end: 20100201

REACTIONS (7)
  - ABSCESS [None]
  - BODY TEMPERATURE INCREASED [None]
  - CELLULITIS [None]
  - DRUG ERUPTION [None]
  - SECRETION DISCHARGE [None]
  - SKIN REACTION [None]
  - VASCULITIS [None]
